FAERS Safety Report 18975489 (Version 7)
Quarter: 2022Q1

REPORT INFORMATION
  Report Type: Spontaneous
  Country: US (occurrence: US)
  Receive Date: 20210305
  Receipt Date: 20220203
  Transmission Date: 20220424
  Serious: Yes (Life-Threatening, Hospitalization, Disabling)
  Sender: FDA-Public Use
  Company Number: US-AMERICAN REGENT INC-2021000527

PATIENT
  Sex: Female
  Weight: 62.585 kg

DRUGS (5)
  1. FERRIC CARBOXYMALTOSE [Suspect]
     Active Substance: FERRIC CARBOXYMALTOSE
     Indication: Iron deficiency anaemia
     Dosage: 750 MILLIGRAM IN SODIUM CHLORIDE 0.9% 115 ML IVPB, ONCE
     Route: 042
     Dates: start: 20190104, end: 20190104
  2. FERRIC CARBOXYMALTOSE [Suspect]
     Active Substance: FERRIC CARBOXYMALTOSE
     Indication: Malabsorption
     Dosage: 750 MILLIGRAM IN SODIUM CHLORIDE 0.9% 115 ML IVPB, ONCE
     Route: 042
     Dates: start: 20190111, end: 20190111
  3. TRAMADOL [Concomitant]
     Active Substance: TRAMADOL
     Indication: Intervertebral disc degeneration
     Dosage: 50 MILLIGRAM, BID
     Route: 065
  4. FLEXERIL                           /00428402/ [Concomitant]
     Indication: Product used for unknown indication
     Dosage: 10 MILLIGRAM, BID
     Route: 065
  5. PRILOSEC                           /00661201/ [Concomitant]
     Indication: Gastrooesophageal reflux disease
     Dosage: 20 MILLIGRAM, BID
     Route: 065

REACTIONS (13)
  - Dental caries [Not Recovered/Not Resolved]
  - Bradycardia [Not Recovered/Not Resolved]
  - Dehydration [Not Recovered/Not Resolved]
  - Back pain [Not Recovered/Not Resolved]
  - Pain [Not Recovered/Not Resolved]
  - Hypophosphataemia [Not Recovered/Not Resolved]
  - Tachycardia [Not Recovered/Not Resolved]
  - Palpitations [Not Recovered/Not Resolved]
  - Paraesthesia [Not Recovered/Not Resolved]
  - Anhedonia [Not Recovered/Not Resolved]
  - Emotional distress [Not Recovered/Not Resolved]
  - Anxiety [Not Recovered/Not Resolved]
  - Product quality issue [Unknown]

NARRATIVE: CASE EVENT DATE: 20190101
